FAERS Safety Report 11472590 (Version 1)
Quarter: 2015Q3

REPORT INFORMATION
  Report Type: Spontaneous
  Country: CH (occurrence: CH)
  Receive Date: 20150908
  Receipt Date: 20150908
  Transmission Date: 20151125
  Serious: Yes (Other)
  Sender: FDA-Public Use
  Company Number: PHHY2015CH106341

PATIENT
  Age: 28 Year
  Sex: Male

DRUGS (8)
  1. FLUPENTIXOL [Suspect]
     Active Substance: FLUPENTIXOL
     Indication: POST-TRAUMATIC STRESS DISORDER
  2. OLANZAPINE. [Suspect]
     Active Substance: OLANZAPINE
     Indication: POST-TRAUMATIC STRESS DISORDER
  3. THIORIDAZINE [Suspect]
     Active Substance: THIORIDAZINE
     Indication: DEPRESSION
     Dosage: 50 MG
     Route: 065
  4. SULPIRIDE [Suspect]
     Active Substance: SULPIRIDE
     Indication: DEPRESSION
     Dosage: 200 MG
     Route: 065
  5. OLANZAPINE. [Suspect]
     Active Substance: OLANZAPINE
     Indication: DEPRESSION
     Dosage: 7.5 MG
     Route: 065
  6. THIORIDAZINE [Suspect]
     Active Substance: THIORIDAZINE
     Indication: POST-TRAUMATIC STRESS DISORDER
  7. SULPIRIDE [Suspect]
     Active Substance: SULPIRIDE
     Indication: POST-TRAUMATIC STRESS DISORDER
  8. FLUPENTIXOL [Suspect]
     Active Substance: FLUPENTIXOL
     Indication: DEPRESSION
     Dosage: 7 MG
     Route: 065

REACTIONS (1)
  - Pathological gambling [Recovered/Resolved]
